FAERS Safety Report 9195798 (Version 2)
Quarter: 2013Q2

REPORT INFORMATION
  Report Type: Spontaneous
  Country: US (occurrence: None)
  Receive Date: 20120703
  Receipt Date: 20121031
  Transmission Date: 20140414
  Serious: No
  Sender: FDA-Public Use
  Company Number: PHEH2012US010453

PATIENT
  Age: 61 Year
  Sex: Female
  Weight: 62.6 kg

DRUGS (4)
  1. GILENYA (FTY) CAPSULE [Suspect]
     Indication: MULTIPLE SCLEROSIS
     Route: 048
     Dates: start: 20110407, end: 20120626
  2. TRAVATAN (TRAVOPROST) [Concomitant]
  3. LIPITOR (ATORVASTATIN CALCIUM) [Concomitant]
  4. HYDROCHLOROTHIAZIDE (HYDROCHLOROTHIAZIDE) [Concomitant]

REACTIONS (5)
  - Tachycardia [None]
  - Ear infection [None]
  - Tooth abscess [None]
  - Sinusitis [None]
  - Pain [None]
